FAERS Safety Report 15262215 (Version 19)
Quarter: 2020Q2

REPORT INFORMATION
  Report Type: Report from Study
  Country: US (occurrence: US)
  Receive Date: 20180809
  Receipt Date: 20200616
  Transmission Date: 20200713
  Serious: Yes (Hospitalization, Other)
  Sender: FDA-Public Use
  Company Number: US-ACTELION-A-NJ2018-165802

PATIENT
  Age: 53 Year
  Sex: Female
  Weight: 89.34 kg

DRUGS (14)
  1. VELETRI [Suspect]
     Active Substance: EPOPROSTENOL
     Dosage: 34 NG/KG, PER MIN
     Route: 042
  2. VERAPAMIL [Concomitant]
     Active Substance: VERAPAMIL HYDROCHLORIDE
  3. VELETRI [Suspect]
     Active Substance: EPOPROSTENOL
     Dosage: 20 NG/KG, PER MIN
     Route: 042
  4. OPSUMIT [Suspect]
     Active Substance: MACITENTAN
     Indication: PULMONARY ARTERIAL HYPERTENSION
     Dosage: 10 MG, QD
     Route: 048
     Dates: start: 201811
  5. WARFARIN [Concomitant]
     Active Substance: WARFARIN
  6. ELIQUIS [Concomitant]
     Active Substance: APIXABAN
  7. VELETRI [Suspect]
     Active Substance: EPOPROSTENOL
     Dosage: 6 MG/KG, PER MIN
     Route: 042
  8. OXYGEN. [Concomitant]
     Active Substance: OXYGEN
     Dosage: 2L AT NIGHT
  9. VELETRI [Suspect]
     Active Substance: EPOPROSTENOL
     Dosage: 8 NG/KG, PER MIN
     Route: 042
  10. VELETRI [Suspect]
     Active Substance: EPOPROSTENOL
     Indication: PULMONARY ARTERIAL HYPERTENSION
     Dosage: 34 NG/KG, PER MIN
     Route: 042
  11. BUMEX [Concomitant]
     Active Substance: BUMETANIDE
  12. VELETRI [Suspect]
     Active Substance: EPOPROSTENOL
     Dosage: 40 NG/KG, PER MIN
     Route: 042
  13. VELETRI [Suspect]
     Active Substance: EPOPROSTENOL
     Dosage: 11 NG/KG, PER MIN
     Route: 042
  14. VELETRI [Suspect]
     Active Substance: EPOPROSTENOL
     Dosage: 7 MG/KG, PER MIN
     Route: 042

REACTIONS (56)
  - Complication associated with device [Unknown]
  - Joint stiffness [Unknown]
  - Catheter site erythema [Unknown]
  - Catheter site scab [Unknown]
  - Platelet count decreased [Unknown]
  - Splenomegaly [Unknown]
  - Chest discomfort [Unknown]
  - Muscle spasms [Recovering/Resolving]
  - Biopsy bone marrow [Unknown]
  - Staphylococcal infection [Unknown]
  - Endoscopy [Unknown]
  - Erythema [Unknown]
  - Catheter site haemorrhage [Unknown]
  - Catheter site swelling [Unknown]
  - Peripheral swelling [Recovered/Resolved]
  - Device issue [Unknown]
  - Sinus disorder [Unknown]
  - Hyperaesthesia [Unknown]
  - Headache [Unknown]
  - Myalgia [Unknown]
  - Cough [Unknown]
  - Nasopharyngitis [Unknown]
  - Back pain [Unknown]
  - Neuropathy peripheral [Unknown]
  - Acquired cardiac septal defect [Unknown]
  - Oxygen saturation decreased [Recovered/Resolved]
  - Rash [Unknown]
  - Fluid retention [Unknown]
  - Feeling of body temperature change [Unknown]
  - Blood iron decreased [Unknown]
  - Arthralgia [Unknown]
  - Pain in jaw [Unknown]
  - Oedema peripheral [Unknown]
  - Dyspnoea exertional [Not Recovered/Not Resolved]
  - Productive cough [Unknown]
  - Respiratory tract congestion [Unknown]
  - Dyspnoea [Unknown]
  - Chest pain [Unknown]
  - Rash erythematous [Unknown]
  - Pain in extremity [Unknown]
  - Haemoptysis [Unknown]
  - Sinusitis [Unknown]
  - Musculoskeletal discomfort [Recovering/Resolving]
  - Device leakage [Unknown]
  - Device related infection [Unknown]
  - Gout [Unknown]
  - Unevaluable event [Unknown]
  - Flushing [Unknown]
  - Catheter site discharge [Unknown]
  - Viral sinusitis [Unknown]
  - Catheter management [Unknown]
  - Catheter site pruritus [Unknown]
  - Nausea [Recovered/Resolved]
  - Catheter site pain [Unknown]
  - Oropharyngeal pain [Unknown]
  - Nasal congestion [Unknown]

NARRATIVE: CASE EVENT DATE: 20180409
